FAERS Safety Report 18522682 (Version 1)
Quarter: 2020Q4

REPORT INFORMATION
  Report Type: Spontaneous
  Country: DE (occurrence: DE)
  Receive Date: 20201119
  Receipt Date: 20201119
  Transmission Date: 20210114
  Serious: Yes (Hospitalization, Other)
  Sender: FDA-Public Use
  Company Number: DE-SA-200316398GDDC

PATIENT

DRUGS (6)
  1. METHOTREXATE. [Suspect]
     Active Substance: METHOTREXATE
     Indication: POLYARTHRITIS
  2. PREDNISONE. [Concomitant]
     Active Substance: PREDNISONE
     Indication: SYSTEMIC LUPUS ERYTHEMATOSUS
     Dosage: DOSE AS USED: 7.5 - 25 MG
  3. LEFLUNOMIDE. [Suspect]
     Active Substance: LEFLUNOMIDE
     Indication: POLYARTHRITIS
  4. LEFLUNOMIDE. [Suspect]
     Active Substance: LEFLUNOMIDE
     Indication: SYSTEMIC LUPUS ERYTHEMATOSUS
     Dosage: 20 MG,QD
  5. PREDNISONE. [Concomitant]
     Active Substance: PREDNISONE
     Indication: POLYARTHRITIS
  6. METHOTREXATE. [Suspect]
     Active Substance: METHOTREXATE
     Indication: SYSTEMIC LUPUS ERYTHEMATOSUS
     Dosage: UNK

REACTIONS (17)
  - Progressive multifocal leukoencephalopathy [Recovering/Resolving]
  - Memory impairment [Recovering/Resolving]
  - Headache [Recovering/Resolving]
  - Demyelination [Recovering/Resolving]
  - Leukopenia [Recovering/Resolving]
  - CD4/CD8 ratio increased [Recovering/Resolving]
  - JC virus CSF test positive [Recovering/Resolving]
  - Gastrointestinal disorder [Unknown]
  - Lymphopenia [Recovering/Resolving]
  - CD8 lymphocytes decreased [Recovering/Resolving]
  - White matter lesion [Recovering/Resolving]
  - Disturbance in attention [Recovering/Resolving]
  - Protein total increased [Recovering/Resolving]
  - CSF oligoclonal band present [Recovering/Resolving]
  - Personality change [Recovering/Resolving]
  - Dysarthria [Recovering/Resolving]
  - Arthralgia [Unknown]
